FAERS Safety Report 13717237 (Version 1)
Quarter: 2017Q3

REPORT INFORMATION
  Report Type: Spontaneous
  Country: US (occurrence: US)
  Receive Date: 20170704
  Receipt Date: 20170704
  Transmission Date: 20171127
  Serious: Yes (Hospitalization)
  Sender: FDA-Public Use
  Company Number: None

PATIENT
  Age: 67 Year
  Sex: Male
  Weight: 81.65 kg

DRUGS (1)
  1. AFINITOR [Suspect]
     Active Substance: EVEROLIMUS
     Indication: ATRIAL FIBRILLATION
     Route: 048
     Dates: start: 20140923

REACTIONS (9)
  - Decreased appetite [None]
  - Nocturia [None]
  - Asthenia [None]
  - Dysuria [None]
  - Dizziness [None]
  - Haemorrhage [None]
  - Chromaturia [None]
  - Melaena [None]
  - Balance disorder [None]

NARRATIVE: CASE EVENT DATE: 20160706
